FAERS Safety Report 5924404-0 (Version None)
Quarter: 2008Q4

REPORT INFORMATION
  Report Type: 
  Country: None (occurrence: None)
  Receive Date: 20081020
  Receipt Date: 20081003
  Transmission Date: 20090506
  Serious: Yes (Hospitalization)
  Sender: FDA-Public Use
  Company Number: FR-B.I. PHARMACEUTICALS,INC./RIDGEFIELD-2008-FF-00656FF

PATIENT
  Sex: Female
  Weight: 70 kg

DRUGS (1)
  1. VIRAMUNE [Suspect]
     Dosage: 400MG
     Route: 048
     Dates: start: 20080711, end: 20080721

REACTIONS (1)
  - RASH GENERALISED [None]
